FAERS Safety Report 6126019-0 (Version None)
Quarter: 2009Q1

REPORT INFORMATION
  Report Type: 
  Country: None (occurrence: None)
  Receive Date: 20090320
  Receipt Date: 20090316
  Transmission Date: 20090719
  Serious: Yes (Hospitalization)
  Sender: FDA-Public Use
  Company Number: FR-ROCHE-622581

PATIENT
  Sex: Female

DRUGS (2)
  1. VALIUM [Suspect]
     Indication: DEPRESSION
     Dosage: FREQUENCY: SINGLE DOSE.
     Route: 048
     Dates: start: 20081104, end: 20081104
  2. ANAFRANIL [Suspect]
     Indication: DEPRESSION
     Dosage: DOSE: 2 BOXES, FREQUENCY: SINGLE DOSE.
     Route: 048
     Dates: start: 20081104, end: 20081104

REACTIONS (2)
  - DRUG TOXICITY [None]
  - SEDATION [None]
